FAERS Safety Report 6925007-1 (Version None)
Quarter: 2010Q3

REPORT INFORMATION
  Report Type: 
  Country: None (occurrence: None)
  Receive Date: 20100816
  Receipt Date: 20100806
  Transmission Date: 20110219
  Serious: Yes (Hospitalization)
  Sender: FDA-Public Use
  Company Number: JP-ASTRAZENECA-2010SE23853

PATIENT
  Age: 72 Year
  Sex: Female

DRUGS (1)
  1. ECARD HD [Suspect]
     Indication: HYPERTENSION
     Dosage: 1 DF DAILY
     Route: 048
     Dates: start: 20091006, end: 20100311

REACTIONS (3)
  - COMPRESSION FRACTURE [None]
  - DERMATITIS ALLERGIC [None]
  - FALL [None]
